FAERS Safety Report 25063642 (Version 1)
Quarter: 2025Q1

REPORT INFORMATION
  Report Type: Spontaneous
  Country: US (occurrence: None)
  Receive Date: 20250310
  Receipt Date: 20250310
  Transmission Date: 20250409
  Serious: No
  Sender: FDA-CTU
  Company Number: None

PATIENT
  Age: 62 Year
  Sex: Male
  Weight: 57 kg

DRUGS (2)
  1. ELIQUIS [Suspect]
     Active Substance: APIXABAN
     Indication: Atrial fibrillation
     Dosage: 2.50 MG TWICE A DAY ORAL ?
     Route: 048
  2. ASPIRIN [Suspect]
     Active Substance: ASPIRIN
     Dosage: 81.00 MG DAILY ORAL ?
     Route: 048
     Dates: end: 20241221

REACTIONS (3)
  - Melaena [None]
  - Haemoglobin decreased [None]
  - Gastrointestinal disorder [None]

NARRATIVE: CASE EVENT DATE: 20060101
